FAERS Safety Report 19602960 (Version 1)
Quarter: 2021Q3

REPORT INFORMATION
  Report Type: Spontaneous
  Country: US (occurrence: US)
  Receive Date: 20210723
  Receipt Date: 20210723
  Transmission Date: 20211014
  Serious: Yes (Hospitalization, Other)
  Sender: FDA-Public Use
  Company Number: US-MYLANLABS-2021M1044429

PATIENT
  Age: 61 Year
  Sex: Female

DRUGS (2)
  1. PRAVASTATIN. [Suspect]
     Active Substance: PRAVASTATIN
     Indication: HYPERCHOLESTEROLAEMIA
     Dosage: UNK
     Route: 065
  2. PREDNISONE. [Suspect]
     Active Substance: PREDNISONE
     Indication: IMMUNE-MEDIATED MYOSITIS
     Dosage: 60 MILLIGRAM
     Route: 048

REACTIONS (2)
  - Treatment failure [Unknown]
  - Immune-mediated myositis [Recovered/Resolved]
